FAERS Safety Report 6361364-5 (Version None)
Quarter: 2009Q3

REPORT INFORMATION
  Report Type: 
  Country: None (occurrence: None)
  Receive Date: 20090918
  Receipt Date: 20090829
  Transmission Date: 20100115
  Serious: Yes (Other)
  Sender: FDA-Public Use
  Company Number: B0593887A

PATIENT
  Sex: Male

DRUGS (3)
  1. ALBENDAZOLE [Suspect]
  2. CIMETIDINE [Suspect]
  3. NITAZOXANIDE [Suspect]

REACTIONS (4)
  - ARTHRALGIA [None]
  - BACK PAIN [None]
  - DRUG INEFFECTIVE [None]
  - DRUG INTERACTION [None]
